FAERS Safety Report 8748580 (Version 3)
Quarter: 2012Q4

REPORT INFORMATION
  Report Type: 
  Country: FR (occurrence: FR)
  Receive Date: 20120827
  Receipt Date: 20121120
  Transmission Date: 20130627
  Serious: Yes (Hospitalization)
  Sender: FDA-Public Use
  Company Number: FR-ROCHE-1106670

PATIENT
  Age: 9 Year
  Sex: Male
  Weight: 48 kg

DRUGS (3)
  1. ROACTEMRA [Suspect]
     Indication: JUVENILE ARTHRITIS
     Route: 042
  2. CORTANCYL [Concomitant]
     Indication: JUVENILE ARTHRITIS
     Route: 048
  3. APRANAX [Concomitant]
     Indication: JUVENILE ARTHRITIS
     Route: 048

REACTIONS (3)
  - Disseminated intravascular coagulation [Recovered/Resolved]
  - Hepatocellular injury [Recovered/Resolved]
  - Thrombocytopenia [Recovered/Resolved]
